FAERS Safety Report 10507734 (Version 1)
Quarter: 2014Q4

REPORT INFORMATION
  Report Type: Spontaneous
  Country: US (occurrence: None)
  Receive Date: 20141008
  Receipt Date: 20141008
  Transmission Date: 20150528
  Serious: No
  Sender: FDA-Public Use
  Company Number: None

PATIENT
  Age: 50 Year
  Sex: Female
  Weight: 72.58 kg

DRUGS (1)
  1. AZITHROMYCIN [Suspect]
     Active Substance: AZITHROMYCIN ANHYDROUS
     Indication: SINUSITIS
     Dosage: 6 CT BLISTER CARD ONCE DAILY TAKEN BY MOUTH
     Route: 048
     Dates: start: 20130302, end: 20130306

REACTIONS (1)
  - Anosmia [None]

NARRATIVE: CASE EVENT DATE: 20130517
